FAERS Safety Report 12196003 (Version 3)
Quarter: 2016Q2

REPORT INFORMATION
  Report Type: Spontaneous
  Country: DE (occurrence: DE)
  Receive Date: 20160321
  Receipt Date: 20160608
  Transmission Date: 20160815
  Serious: Yes (Hospitalization)
  Sender: FDA-Public Use
  Company Number: PHHY2016DE036785

PATIENT
  Sex: Female
  Weight: 70 kg

DRUGS (5)
  1. VOLTAREN RESINAT [Suspect]
     Active Substance: DICLOFENAC
     Indication: BACK PAIN
     Dosage: 145.6 MG, QD
     Route: 065
     Dates: start: 201603, end: 20160316
  2. VOLTAREN RESINAT [Interacting]
     Active Substance: DICLOFENAC
     Indication: OSTEOARTHRITIS
  3. CORTISONE [Concomitant]
     Active Substance: CORTISONE\HYDROCORTISONE
     Indication: PRODUCT USED FOR UNKNOWN INDICATION
     Route: 065
     Dates: start: 20160315
  4. RAMIPRIL. [Interacting]
     Active Substance: RAMIPRIL
     Indication: PRODUCT USED FOR UNKNOWN INDICATION
     Route: 065
  5. VOLTAREN RESINAT [Interacting]
     Active Substance: DICLOFENAC
     Indication: ARTHRALGIA

REACTIONS (2)
  - Drug interaction [Unknown]
  - Blood pressure increased [Recovered/Resolved]

NARRATIVE: CASE EVENT DATE: 20160316
